FAERS Safety Report 15887436 (Version 1)
Quarter: 2019Q1

REPORT INFORMATION
  Report Type: Spontaneous
  Country: FR (occurrence: FR)
  Receive Date: 20190130
  Receipt Date: 20190130
  Transmission Date: 20190417
  Serious: Yes (Other)
  Sender: FDA-Public Use
  Company Number: FR-ADAREPHARM-2019-FR-000001

PATIENT
  Age: 85 Year
  Sex: Female
  Weight: 50 kg

DRUGS (7)
  1. CARBOMER 980 [Suspect]
     Active Substance: CARBOMER HOMOPOLYMER TYPE C (ALLYL PENTAERYTHRITOL CROSSLINKED)
     Indication: DRY EYE
     Route: 047
     Dates: start: 20180205
  2. CICLOSPORIN [Suspect]
     Active Substance: CYCLOSPORINE
     Indication: KERATITIS
     Route: 047
     Dates: start: 201712
  3. PREDNISOLONE. [Suspect]
     Active Substance: PREDNISOLONE
     Indication: SJOGREN^S SYNDROME
     Route: 048
     Dates: start: 2016
  4. CALCIUM, CHOLECALCIFEROL CONCENTRATE, CALCIUM CARBONATE, CHOLECALCIFER [Suspect]
     Active Substance: CALCIUM CARBONATE\CHOLECALCIFEROL
     Indication: PROPHYLAXIS
     Route: 048
     Dates: start: 2016
  5. KCL [Suspect]
     Active Substance: POTASSIUM CHLORIDE
     Indication: PROPHYLAXIS
     Route: 048
     Dates: start: 2016
  6. CARTEOLOL HYDROCHLORIDE. [Suspect]
     Active Substance: CARTEOLOL HYDROCHLORIDE
     Indication: OCULAR HYPERTENSION
     Route: 047
     Dates: start: 20180205
  7. LACRIFLUID [Suspect]
     Active Substance: CARBOMER
     Indication: DRY EYE
     Route: 047
     Dates: start: 20180205

REACTIONS (1)
  - Hypertension [Unknown]

NARRATIVE: CASE EVENT DATE: 201802
